FAERS Safety Report 4707284-0 (Version None)
Quarter: 2005Q3

REPORT INFORMATION
  Report Type: 
  Country: None (occurrence: None)
  Receive Date: 20050701
  Receipt Date: 20050623
  Transmission Date: 20060218
  Serious: Yes (Death, Hospitalization)
  Sender: FDA-Public Use
  Company Number: 2005092610

PATIENT
  Age: 77 Year
  Sex: Female

DRUGS (1)
  1. XALATAN [Suspect]
     Indication: GLAUCOMA
     Dosage: 2 DROP (SINGLE INTERVAL:  EVERYDAY), TOPICAL
     Route: 061
     Dates: start: 20010207, end: 20040108

REACTIONS (1)
  - SURGERY [None]
